FAERS Safety Report 13194332 (Version 3)
Quarter: 2021Q2

REPORT INFORMATION
  Report Type: Spontaneous
  Country: US (occurrence: US)
  Receive Date: 20170207
  Receipt Date: 20210514
  Transmission Date: 20210716
  Serious: No
  Sender: FDA-Public Use
  Company Number: US-JAZZ-2016-US-023419

PATIENT
  Sex: Male

DRUGS (6)
  1. XYREM [Suspect]
     Active Substance: SODIUM OXYBATE
     Dosage: 4.5 G, BID
     Route: 048
     Dates: start: 201302
  2. XYREM [Suspect]
     Active Substance: SODIUM OXYBATE
     Indication: NARCOLEPSY
     Dosage: 2.25 G, BID
     Route: 048
     Dates: start: 200311, end: 2003
  3. XYREM [Suspect]
     Active Substance: SODIUM OXYBATE
     Indication: CATAPLEXY
     Dosage: DOSE ADJUSTMENT
     Route: 048
     Dates: start: 2003, end: 2013
  4. N?ACETYL?L?CYSTEINE [Concomitant]
     Active Substance: ACETYLCYSTEINE
  5. URSODIOL. [Concomitant]
     Active Substance: URSODIOL
  6. LOVENOX [Concomitant]
     Active Substance: ENOXAPARIN SODIUM

REACTIONS (12)
  - Illness [Unknown]
  - Thinking abnormal [Unknown]
  - Hiatus hernia [Unknown]
  - Pre-existing condition improved [Unknown]
  - Carpal tunnel syndrome [Recovering/Resolving]
  - Vertebral osteophyte [Unknown]
  - Pain [Unknown]
  - Scoliosis [Unknown]
  - Connective tissue disorder [Unknown]
  - Therapeutic response unexpected [Unknown]
  - Musculoskeletal discomfort [Not Recovered/Not Resolved]
  - Dizziness [Unknown]
